FAERS Safety Report 4324199-0 (Version None)
Quarter: 2004Q1

REPORT INFORMATION
  Report Type: 
  Country: None (occurrence: None)
  Receive Date: 20040326
  Receipt Date: 20040106
  Transmission Date: 20041129
  Serious: No
  Sender: FDA-Public Use
  Company Number: US-GLAXOSMITHKLINE-A0491732A

PATIENT
  Age: 38 Year
  Sex: Female

DRUGS (3)
  1. ADVAIR DISKUS 100/50 [Suspect]
     Dosage: 1PUFF TWICE PER DAY
     Route: 055
     Dates: start: 20031217, end: 20031220
  2. ZITHROMAX [Concomitant]
  3. NASAL SPRAY [Concomitant]

REACTIONS (1)
  - ORAL SOFT TISSUE DISORDER [None]
